FAERS Safety Report 24387893 (Version 2)
Quarter: 2024Q4

REPORT INFORMATION
  Report Type: Spontaneous
  Country: DE (occurrence: DE)
  Receive Date: 20241002
  Receipt Date: 20241028
  Transmission Date: 20250115
  Serious: Yes (Other)
  Sender: NOVARTIS
  Company Number: DE-002147023-NVSC2024DE192615

PATIENT
  Sex: Female

DRUGS (1)
  1. GLIVEC [Suspect]
     Active Substance: IMATINIB MESYLATE
     Indication: Gastrointestinal stromal tumour
     Dosage: UNK
     Route: 065

REACTIONS (8)
  - Gastrointestinal stromal tumour [Unknown]
  - Disease recurrence [Unknown]
  - Drug intolerance [Unknown]
  - Dyspepsia [Unknown]
  - Skin burning sensation [Unknown]
  - Mucosal inflammation [Unknown]
  - Nausea [Unknown]
  - Diarrhoea [Unknown]
